FAERS Safety Report 25522159 (Version 1)
Quarter: 2025Q3

REPORT INFORMATION
  Report Type: Spontaneous
  Country: US (occurrence: US)
  Receive Date: 20250707
  Receipt Date: 20250707
  Transmission Date: 20251021
  Serious: No
  Sender: ROCHE
  Company Number: US-ROCHE-10000321665

PATIENT
  Age: 52 Year
  Sex: Female
  Weight: 187 kg

DRUGS (7)
  1. ACTEMRA [Suspect]
     Active Substance: TOCILIZUMAB
     Indication: Rheumatoid arthritis
     Route: 058
     Dates: start: 202504
  2. ACTEMRA [Suspect]
     Active Substance: TOCILIZUMAB
     Indication: Sjogren^s syndrome
  3. ACTEMRA [Suspect]
     Active Substance: TOCILIZUMAB
     Indication: Pulmonary mass
  4. MOUNJARO [Concomitant]
     Active Substance: TIRZEPATIDE
     Indication: Type 2 diabetes mellitus
     Dosage: TAKEN EVERY SUNDAY
     Route: 058
     Dates: start: 2024
  5. MOUNJARO [Concomitant]
     Active Substance: TIRZEPATIDE
     Route: 058
  6. MOUNJARO [Concomitant]
     Active Substance: TIRZEPATIDE
     Route: 058
     Dates: start: 202504
  7. HUMIRA [Concomitant]
     Active Substance: ADALIMUMAB

REACTIONS (5)
  - Fatigue [Unknown]
  - Off label use [Unknown]
  - Wrong technique in product usage process [Unknown]
  - Product packaging issue [Unknown]
  - Drug delivery system malfunction [Unknown]

NARRATIVE: CASE EVENT DATE: 20250622
